FAERS Safety Report 7011873-0 (Version None)
Quarter: 2010Q3

REPORT INFORMATION
  Report Type: 
  Country: None (occurrence: None)
  Receive Date: 20100924
  Receipt Date: 20100910
  Transmission Date: 20110219
  Serious: Yes (Hospitalization)
  Sender: FDA-Public Use
  Company Number: DE-MYLANLABS-2009S1000717

PATIENT
  Age: 73 Year
  Sex: Female

DRUGS (9)
  1. BISOPROLOL FUMARATE [Interacting]
     Indication: HYPERTENSION
     Route: 048
     Dates: start: 20050101, end: 20080930
  2. MOXONIDIN [Interacting]
     Indication: HYPERTENSION
     Route: 048
     Dates: start: 20080401, end: 20080930
  3. XYLOCITIN [Suspect]
     Indication: LOCAL ANAESTHESIA
     Route: 058
     Dates: start: 20080930, end: 20080930
  4. DIGITOXIN [Interacting]
     Indication: TACHYARRHYTHMIA
     Route: 048
     Dates: start: 20080101, end: 20080930
  5. TRIAM /00012501/ [Suspect]
     Indication: ARTHRITIS
     Route: 014
     Dates: start: 20080930, end: 20080930
  6. SPIRONOLACTONE [Concomitant]
     Indication: OEDEMA
     Route: 048
     Dates: start: 20080101
  7. DIOVAN [Concomitant]
     Indication: HYPERTENSION
     Route: 048
     Dates: start: 20080101
  8. FALITHROM [Concomitant]
     Indication: TACHYARRHYTHMIA
     Route: 048
     Dates: start: 20080101
  9. NOVONORM [Concomitant]
     Indication: TYPE 2 DIABETES MELLITUS
     Route: 048
     Dates: start: 20080801

REACTIONS (2)
  - DRUG INTERACTION [None]
  - SINUS BRADYCARDIA [None]
